FAERS Safety Report 11796999 (Version 2)
Quarter: 2015Q4

REPORT INFORMATION
  Report Type: Report from Study
  Country: US (occurrence: US)
  Receive Date: 20151203
  Receipt Date: 20151231
  Transmission Date: 20160305
  Serious: Yes (Death)
  Sender: FDA-Public Use
  Company Number: US-BAYER-2014-096763

PATIENT
  Age: 85 Year
  Sex: Male
  Weight: 115.19 kg

DRUGS (8)
  1. ADEMPAS [Suspect]
     Active Substance: RIOCIGUAT
     Indication: PULMONARY HYPERTENSION
     Dosage: 1 MG, TID
     Route: 048
  2. FUROSEMIDE. [Concomitant]
     Active Substance: FUROSEMIDE
  3. WARFARIN [Concomitant]
     Active Substance: WARFARIN
     Dosage: UNK
  4. ADEMPAS [Suspect]
     Active Substance: RIOCIGUAT
     Indication: PULMONARY HYPERTENSION
     Dosage: UNK
     Route: 048
     Dates: start: 201404
  5. ADEMPAS [Suspect]
     Active Substance: RIOCIGUAT
     Indication: PULMONARY HYPERTENSION
     Dosage: 1 MG, TID
     Route: 048
     Dates: start: 20140604
  6. ADEMPAS [Suspect]
     Active Substance: RIOCIGUAT
     Indication: PULMONARY HYPERTENSION
     Dosage: 1.5 MG, TID
     Route: 048
  7. PREDNISONE. [Concomitant]
     Active Substance: PREDNISONE
  8. ADEMPAS [Suspect]
     Active Substance: RIOCIGUAT
     Indication: PULMONARY HYPERTENSION
     Dosage: 2 MG, TID
     Route: 048

REACTIONS (16)
  - Nasal dryness [None]
  - Pollakiuria [None]
  - Somnolence [None]
  - Peripheral swelling [None]
  - Constipation [Unknown]
  - Dry mouth [None]
  - Dyspnoea [Unknown]
  - Dyspepsia [None]
  - Nasal congestion [None]
  - Palpitations [Unknown]
  - Fall [None]
  - Sinus disorder [None]
  - Pulmonary hypertension [Fatal]
  - Dizziness [Unknown]
  - Poor quality sleep [None]
  - Balance disorder [Unknown]

NARRATIVE: CASE EVENT DATE: 20140624
